FAERS Safety Report 13987369 (Version 8)
Quarter: 2018Q3

REPORT INFORMATION
  Report Type: Spontaneous
  Country: DE (occurrence: DE)
  Receive Date: 20170919
  Receipt Date: 20180808
  Transmission Date: 20181010
  Serious: Yes (Other)
  Sender: FDA-Public Use
  Company Number: DE-TEVA-805891GER

PATIENT
  Age: 63 Year
  Sex: Male
  Weight: 119 kg

DRUGS (18)
  1. TRANEXAMIC ACID. [Suspect]
     Active Substance: TRANEXAMIC ACID
     Indication: PRODUCT USED FOR UNKNOWN INDICATION
     Route: 065
     Dates: start: 20170829, end: 20170829
  2. AMLODIPIN 5 [Concomitant]
     Dosage: 5 MILLIGRAM DAILY; 55000 IU (INTERNATIONAL UNIT) DAILY
  3. NORADRENALIN [Concomitant]
     Active Substance: NOREPINEPHRINE\NOREPINEPHRINE BITARTRATE
     Indication: PRODUCT USED FOR UNKNOWN INDICATION
     Route: 065
     Dates: start: 20170829
  4. ALLOPURINOL 300 [Concomitant]
     Active Substance: ALLOPURINOL
     Indication: PRODUCT USED FOR UNKNOWN INDICATION
     Dosage: 0?0?1
     Route: 065
  5. CELIPROLOL 200 [Concomitant]
     Indication: PRODUCT USED FOR UNKNOWN INDICATION
     Dosage: 0.5?0?0
     Route: 065
  6. CELIPROLOL 200 [Concomitant]
     Dosage: 100 MILLIGRAM DAILY; 55000 IU (INTERNATIONAL UNIT) DAILY
     Route: 065
  7. CANDESARTAN 16 [Concomitant]
     Indication: PRODUCT USED FOR UNKNOWN INDICATION
     Dosage: 1?0?0
     Route: 065
  8. CANDESARTAN 16 [Concomitant]
     Dosage: 16 MILLIGRAM DAILY; 55000 IU (INTERNATIONAL UNIT) DAILY
  9. NORADRENALIN [Concomitant]
     Active Substance: NOREPINEPHRINE\NOREPINEPHRINE BITARTRATE
     Dosage: UP TO 0.85 UG/KG/MIN (30H POST?OP)
     Route: 065
  10. AMIODARON [Concomitant]
     Active Substance: AMIODARONE
     Indication: PRODUCT USED FOR UNKNOWN INDICATION
     Route: 065
  11. TRANEXAMIC ACID. [Suspect]
     Active Substance: TRANEXAMIC ACID
     Route: 065
     Dates: start: 20170829
  12. ALLOPURINOL 300 [Concomitant]
     Active Substance: ALLOPURINOL
     Dosage: 55000 IU (INTERNATIONAL UNIT) DAILY;
     Route: 065
  13. HEPARIN?NATRIUM?25 000?RATIOPHARM [Suspect]
     Active Substance: HEPARIN SODIUM
     Indication: PRODUCT USED FOR UNKNOWN INDICATION
     Route: 065
     Dates: start: 20170829, end: 20170829
  14. AMLODIPIN 5 [Concomitant]
     Indication: PRODUCT USED FOR UNKNOWN INDICATION
     Dosage: 0?0?1
     Route: 065
  15. AMOXICILINA / CLAVULANICO [Concomitant]
     Indication: GINGIVITIS
     Route: 065
  16. SEVORANE [Concomitant]
     Active Substance: SEVOFLURANE
     Indication: PRODUCT USED FOR UNKNOWN INDICATION
     Route: 065
     Dates: start: 20170829
  17. STEROFUNDIN [Concomitant]
     Active Substance: CALCIUM CHLORIDE\MAGNESIUM CHLORIDE\POTASSIUM CHLORIDE\SODIUM ACETATE\SODIUM CHLORIDE
     Indication: PRODUCT USED FOR UNKNOWN INDICATION
     Route: 065
     Dates: start: 20170829
  18. CUSTODIOL?PERFUSIONSLOESUNG [Concomitant]
     Indication: PRODUCT USED FOR UNKNOWN INDICATION
     Route: 065
     Dates: start: 20170829

REACTIONS (4)
  - Therapeutic response decreased [Unknown]
  - Acute kidney injury [Unknown]
  - Transaminases increased [Unknown]
  - Drug ineffective [Unknown]

NARRATIVE: CASE EVENT DATE: 20170829
